FAERS Safety Report 22094123 (Version 1)
Quarter: 2023Q1

REPORT INFORMATION
  Report Type: Spontaneous
  Country: US (occurrence: US)
  Receive Date: 20230314
  Receipt Date: 20230314
  Transmission Date: 20230418
  Serious: No
  Sender: FDA-Public Use
  Company Number: US-Dermavant-000312

PATIENT
  Age: 69 Year
  Sex: Female

DRUGS (5)
  1. TAPINAROF [Suspect]
     Active Substance: TAPINAROF
     Indication: Psoriasis
     Route: 061
     Dates: start: 20221121, end: 20221128
  2. TRAZODONE [Concomitant]
     Active Substance: TRAZODONE HYDROCHLORIDE
  3. TIMOLOL [Concomitant]
     Active Substance: TIMOLOL
  4. PANTOPRAZOLE [Concomitant]
     Active Substance: PANTOPRAZOLE
  5. LOSARTAN [Concomitant]
     Active Substance: LOSARTAN

REACTIONS (8)
  - Drug hypersensitivity [Recovered/Resolved]
  - Dysphagia [Recovered/Resolved]
  - Skin burning sensation [Recovered/Resolved]
  - Swelling [Recovered/Resolved]
  - Erythema [Recovered/Resolved]
  - Dyspnoea [Recovered/Resolved]
  - Blister [Recovered/Resolved]
  - Swollen tongue [Recovered/Resolved]

NARRATIVE: CASE EVENT DATE: 20221101
